FAERS Safety Report 16187593 (Version 1)
Quarter: 2019Q2

REPORT INFORMATION
  Report Type: Spontaneous
  Country: GB (occurrence: GB)
  Receive Date: 20190412
  Receipt Date: 20190412
  Transmission Date: 20190711
  Serious: Yes (Disabling, Other)
  Sender: FDA-Public Use
  Company Number: GB-SA-2019SA097094

PATIENT
  Age: 60 Year
  Sex: Male
  Weight: 105 kg

DRUGS (6)
  1. OMEPRAZOLE. [Suspect]
     Active Substance: OMEPRAZOLE
     Dosage: 20 MG
  2. RANITIDINE. [Concomitant]
     Active Substance: RANITIDINE
     Dosage: 300 MG, QD
     Dates: start: 20190315
  3. CLOPIDOGREL BISULFATE. [Suspect]
     Active Substance: CLOPIDOGREL BISULFATE
     Dosage: 75 MG, QD
     Dates: start: 20190221
  4. PREGABALIN. [Concomitant]
     Active Substance: PREGABALIN
     Dosage: 450 MG, QD
     Dates: start: 20190221
  5. CEFALEXIN [Concomitant]
     Active Substance: CEPHALEXIN
     Dosage: 1000 MG, QD
     Dates: start: 20190120
  6. CANDESARTAN. [Concomitant]
     Active Substance: CANDESARTAN
     Dosage: 8 MG, QD
     Dates: start: 20190101

REACTIONS (2)
  - Drug interaction [Unknown]
  - Hemiparesis [Unknown]
